FAERS Safety Report 23019952 (Version 1)
Quarter: 2023Q4

REPORT INFORMATION
  Report Type: Spontaneous
  Country: US (occurrence: None)
  Receive Date: 20231003
  Receipt Date: 20231003
  Transmission Date: 20240109
  Serious: Yes (Other)
  Sender: FDA-Public Use
  Company Number: US-ROCHE-3430187

PATIENT
  Age: 5 Year
  Sex: Male
  Weight: 18.614 kg

DRUGS (1)
  1. HEMLIBRA [Suspect]
     Active Substance: EMICIZUMAB-KXWH
     Indication: Haemophilia A without inhibitors
     Dosage: YES
     Route: 058
     Dates: start: 20220311

REACTIONS (7)
  - Seizure [Unknown]
  - Tremor [Unknown]
  - Epistaxis [Recovered/Resolved]
  - Pallor [Recovered/Resolved]
  - Haematemesis [Recovered/Resolved]
  - Drooling [Recovered/Resolved]
  - Loss of consciousness [Recovered/Resolved]

NARRATIVE: CASE EVENT DATE: 20230701
